FAERS Safety Report 9551333 (Version 1)
Quarter: 2013Q3

REPORT INFORMATION
  Report Type: Spontaneous
  Country: US (occurrence: US)
  Receive Date: 20130925
  Receipt Date: 20130925
  Transmission Date: 20140515
  Serious: Yes (Other)
  Sender: FDA-Public Use
  Company Number: US-BRISTOL-MYERS SQUIBB COMPANY-19430396

PATIENT
  Sex: Female

DRUGS (4)
  1. EFAVIRENZ [Suspect]
     Indication: HIV INFECTION
  2. ZIAGEN [Suspect]
     Indication: HIV INFECTION
     Route: 048
  3. EPIVIR [Suspect]
     Indication: HIV INFECTION
     Route: 048
  4. TRUVADA [Suspect]
     Indication: HIV INFECTION

REACTIONS (1)
  - Tubulointerstitial nephritis [Unknown]
